FAERS Safety Report 5127880-9 (Version None)
Quarter: 2006Q4

REPORT INFORMATION
  Report Type: 
  Country: None (occurrence: None)
  Receive Date: 20061011
  Receipt Date: 20060925
  Transmission Date: 20070319
  Serious: Yes (Death)
  Sender: FDA-Public Use
  Company Number: 032-76

PATIENT
  Age: 76 Year
  Sex: Female

DRUGS (8)
  1. TEVETEN [Suspect]
     Indication: HYPERTENSION
     Dosage: 600 MG QD PO
     Route: 048
     Dates: end: 20060531
  2. ADALAT [Concomitant]
  3. ASPIRIN [Concomitant]
  4. DIABETA [Concomitant]
  5. RESTORIL [Concomitant]
  6. LUVOX SA [Concomitant]
  7. LIPIDIL [Concomitant]
  8. GLUCOPHAGE [Concomitant]

REACTIONS (1)
  - PULMONARY OEDEMA [None]
